FAERS Safety Report 13898091 (Version 2)
Quarter: 2017Q4

REPORT INFORMATION
  Report Type: Spontaneous
  Country: US (occurrence: US)
  Receive Date: 20170823
  Receipt Date: 20171016
  Transmission Date: 20180320
  Serious: No
  Sender: FDA-Public Use
  Company Number: US-ASTRAZENECA-2017SE85738

PATIENT
  Age: 20336 Day
  Sex: Male
  Weight: 90.7 kg

DRUGS (2)
  1. TUDORZA PRESSAIR [Suspect]
     Active Substance: ACLIDINIUM BROMIDE
     Indication: RESPIRATION ABNORMAL
     Route: 055
     Dates: start: 201708
  2. ALBUTEROL. [Concomitant]
     Active Substance: ALBUTEROL
     Indication: SUPPLEMENTATION THERAPY
     Dosage: AS REQUIRED

REACTIONS (7)
  - Product use issue [Unknown]
  - Product use in unapproved indication [Not Recovered/Not Resolved]
  - Product quality issue [Unknown]
  - Off label use [Not Recovered/Not Resolved]
  - Lung disorder [Not Recovered/Not Resolved]
  - Incorrect dose administered [Not Recovered/Not Resolved]
  - Drug dose omission [Unknown]

NARRATIVE: CASE EVENT DATE: 20170816
